FAERS Safety Report 10638525 (Version 1)
Quarter: 2014Q4

REPORT INFORMATION
  Report Type: Spontaneous
  Country: GB (occurrence: GB)
  Receive Date: 20141208
  Receipt Date: 20141208
  Transmission Date: 20150529
  Serious: Yes (Other)
  Sender: FDA-Public Use
  Company Number: PHHY2014GB157910

PATIENT
  Age: 75 Year
  Sex: Female

DRUGS (3)
  1. HYDROCORTISONE. [Concomitant]
     Active Substance: HYDROCORTISONE
     Dates: start: 20140824, end: 20140831
  2. PENICILLIN V POTASSIUM. [Suspect]
     Active Substance: PENICILLIN V POTASSIUM
  3. PENICILLIN                         /02215301/ [Concomitant]
     Active Substance: PENICILLIN
     Route: 002
     Dates: start: 20141105

REACTIONS (3)
  - Rash [Recovered/Resolved]
  - Nausea [Recovered/Resolved]
  - Lip swelling [Recovered/Resolved]

NARRATIVE: CASE EVENT DATE: 20141105
